FAERS Safety Report 11153038 (Version 1)
Quarter: 2015Q2

REPORT INFORMATION
  Report Type: Report from Study
  Country: CA (occurrence: CA)
  Receive Date: 20150601
  Receipt Date: 20150601
  Transmission Date: 20150821
  Serious: Yes (Other)
  Sender: FDA-Public Use
  Company Number: CA-ACTELION-A-US2015-118519

PATIENT
  Age: 48 Year
  Sex: Female

DRUGS (9)
  1. DIAMICRON [Concomitant]
     Active Substance: GLICLAZIDE
  2. LASIX [Concomitant]
     Active Substance: FUROSEMIDE
  3. SPIRONOLACTONE. [Concomitant]
     Active Substance: SPIRONOLACTONE
  4. ASPIRIN. [Concomitant]
     Active Substance: ASPIRIN
  5. IRON [Concomitant]
     Active Substance: IRON
  6. ZAROXOLYN [Concomitant]
     Active Substance: METOLAZONE
  7. VELETRI [Suspect]
     Active Substance: EPOPROSTENOL
     Indication: PULMONARY ARTERIAL HYPERTENSION
     Dosage: 30000 NG/ML, PER MIN
     Route: 042
     Dates: start: 20141121
  8. RANITIDINE [Concomitant]
     Active Substance: RANITIDINE\RANITIDINE HYDROCHLORIDE
  9. POTASSIUM [Concomitant]
     Active Substance: POTASSIUM

REACTIONS (3)
  - Pallor [Recovered/Resolved]
  - Flushing [Recovered/Resolved]
  - Device leakage [Recovered/Resolved]
